FAERS Safety Report 13444395 (Version 2)
Quarter: 2020Q4

REPORT INFORMATION
  Report Type: Spontaneous
  Country: GB (occurrence: GB)
  Receive Date: 20170414
  Receipt Date: 20201015
  Transmission Date: 20210113
  Serious: Yes (Congenital Anomaly)
  Sender: FDA-Public Use
  Company Number: GB-GILEAD-2017-0266799

PATIENT

DRUGS (9)
  1. HARVONI [Suspect]
     Active Substance: LEDIPASVIR\SOFOSBUVIR
     Indication: CHRONIC HEPATITIS C
     Dosage: 8 WEEK COURSE
     Route: 064
     Dates: end: 20160802
  2. ATRIPLA [Concomitant]
     Active Substance: EFAVIRENZ\EMTRICITABINE\TENOFOVIR DISOPROXIL FUMARATE
     Route: 065
  3. AMITRIPTYLINE HYDROCHLORIDE. [Concomitant]
     Active Substance: AMITRIPTYLINE HYDROCHLORIDE
     Route: 065
  4. ASPIRIN                            /00002701/ [Concomitant]
     Active Substance: ASPIRIN
     Route: 065
  5. LANSOPRAZOLE. [Concomitant]
     Active Substance: LANSOPRAZOLE
     Route: 065
  6. GABAPENTIN. [Concomitant]
     Active Substance: GABAPENTIN
     Route: 065
  7. AVOMINE [Concomitant]
     Active Substance: PROMETHAZINE TEOCLATE
     Route: 065
  8. FERROUS FUMARATE [Concomitant]
     Active Substance: FERROUS FUMARATE
     Route: 065
  9. HUMULIN NOS [Concomitant]
     Active Substance: INSULIN HUMAN
     Route: 065

REACTIONS (2)
  - Foetal exposure during pregnancy [Unknown]
  - Corrected transposition of great vessels [Unknown]
